FAERS Safety Report 4636271-6 (Version None)
Quarter: 2005Q2

REPORT INFORMATION
  Report Type: 
  Country: None (occurrence: None)
  Receive Date: 20050415
  Receipt Date: 20040505
  Transmission Date: 20051028
  Serious: No
  Sender: FDA-Public Use
  Company Number: US-BRISTOL-MYERS SQUIBB COMPANY-12579942

PATIENT
  Age: 49 Year
  Sex: Female
  Weight: 82 kg

DRUGS (9)
  1. CARBOPLATIN [Suspect]
     Indication: OVARIAN CANCER
     Dosage: C3 (DAY 1): 25-MAR-2004, 1040 MG IN 250 ML NS C4 (DAY 1): 16-APR-2004, 1040 MG IN 500 ML NS
     Route: 042
     Dates: start: 20040305, end: 20040305
  2. TAXOL [Concomitant]
     Dosage: CYCLE 3 (DAY 1): 25-MAR-2004 CYCLE 4 (DAY 1): 16-APR-2004
     Route: 042
     Dates: start: 20040305, end: 20040305
  3. ALOXI [Concomitant]
     Indication: PREMEDICATION
     Dosage: CYCLE 3 (DAY 1): 25-MAR-2004 CYCLE 4 (DAY 1): 16-APR-2004
     Route: 042
     Dates: start: 20040305, end: 20040305
  4. DECADRON [Concomitant]
     Indication: PREMEDICATION
     Dosage: CYCLE 3 (DAY 1): 25-MAR-2004 CYCLE 4 (DAY 1): 16-APR-2004
     Route: 042
     Dates: start: 20040305, end: 20040305
  5. TAGAMET [Concomitant]
     Indication: PREMEDICATION
     Dosage: CYCLE 3 (DAY 1): 25-MAR-2004 CYCLE 4 (DAY 1): 16-APR-2004
     Route: 042
     Dates: start: 20040305, end: 20040305
  6. BENADRYL [Concomitant]
     Indication: PREMEDICATION
     Dosage: C3 (D1): 25-MAR-04, ADD'L 25 MG  C4 (D1): 16-APR-04, ADD'L 25 MG
     Route: 042
     Dates: start: 20040305, end: 20040305
  7. ZOLOFT [Concomitant]
  8. AMBIEN [Concomitant]
  9. ZOFRAN [Concomitant]

REACTIONS (7)
  - BLOOD PRESSURE INCREASED [None]
  - BURNING SENSATION [None]
  - ERYTHEMA [None]
  - HEADACHE [None]
  - NAUSEA [None]
  - PARAESTHESIA [None]
  - PRURITUS [None]
